FAERS Safety Report 12395777 (Version 1)
Quarter: 2016Q2

REPORT INFORMATION
  Report Type: Spontaneous
  Country: US (occurrence: US)
  Receive Date: 20160523
  Receipt Date: 20160523
  Transmission Date: 20160815
  Serious: No
  Sender: FDA-Public Use
  Company Number: US-BANPHARM-20154463

PATIENT
  Age: 27 Year
  Sex: Female
  Weight: 58.97 kg

DRUGS (1)
  1. IBUPROFEN CAPSULES 200 MG [Suspect]
     Active Substance: IBUPROFEN
     Indication: HEADACHE
     Dosage: 2 DF, ONCE,
     Route: 048
     Dates: start: 20151011

REACTIONS (5)
  - Abdominal pain upper [Recovered/Resolved]
  - Feeding disorder [Recovered/Resolved]
  - Fatigue [Recovered/Resolved]
  - Dyspepsia [Recovered/Resolved]
  - Nausea [Recovered/Resolved]
